FAERS Safety Report 13633702 (Version 1)
Quarter: 2017Q2

REPORT INFORMATION
  Report Type: Spontaneous
  Country: US (occurrence: US)
  Receive Date: 20170531
  Receipt Date: 20170531
  Transmission Date: 20170830
  Serious: No
  Sender: FDA-Public Use
  Company Number: US-ASTELLAS-1571668

PATIENT
  Sex: Female

DRUGS (9)
  1. ALIMTA [Concomitant]
     Active Substance: PEMETREXED DISODIUM
     Route: 065
  2. RAMUCIRUMAB [Concomitant]
     Active Substance: RAMUCIRUMAB
     Route: 065
  3. TARCEVA [Suspect]
     Active Substance: ERLOTINIB HYDROCHLORIDE
     Indication: LUNG NEOPLASM MALIGNANT
     Route: 048
     Dates: start: 20140813
  4. TARCEVA [Suspect]
     Active Substance: ERLOTINIB HYDROCHLORIDE
     Indication: AGRANULOCYTOSIS
  5. NEUPOGEN [Concomitant]
     Active Substance: FILGRASTIM
     Route: 065
  6. GRANISETRON [Concomitant]
     Active Substance: GRANISETRON
     Route: 065
  7. TAXOTERE [Concomitant]
     Active Substance: DOCETAXEL
     Route: 065
  8. AVASTIN [Suspect]
     Active Substance: BEVACIZUMAB
     Indication: PRODUCT USED FOR UNKNOWN INDICATION
     Route: 065
  9. VITAMIN B12 [Concomitant]
     Active Substance: CYANOCOBALAMIN
     Route: 065

REACTIONS (4)
  - Abdominal pain upper [Unknown]
  - Diarrhoea [Unknown]
  - Rash [Unknown]
  - Fatigue [Unknown]
